FAERS Safety Report 11323121 (Version 1)
Quarter: 2015Q3

REPORT INFORMATION
  Report Type: Spontaneous
  Country: AT (occurrence: AT)
  Receive Date: 20150730
  Receipt Date: 20150730
  Transmission Date: 20151125
  Serious: Yes (Other)
  Sender: FDA-Public Use
  Company Number: AT-HOSPIRA-2854687

PATIENT
  Age: 21 Year
  Sex: Female
  Weight: 65 kg

DRUGS (10)
  1. NEOSTIGMINE [Suspect]
     Active Substance: NEOSTIGMINE
     Indication: ANAESTHESIA PROCEDURE
  2. DICLOFENAC [Suspect]
     Active Substance: DICLOFENAC
     Indication: ANAESTHESIA PROCEDURE
  3. NITROUS OXIDE W/OXYGEN [Suspect]
     Active Substance: NITROUS OXIDE\OXYGEN
     Indication: ANAESTHESIA PROCEDURE
     Dosage: NOT REPORTED
  4. ROCURONIUM [Suspect]
     Active Substance: ROCURONIUM BROMIDE
     Indication: ANAESTHESIA PROCEDURE
  5. PROPOFOL. [Suspect]
     Active Substance: PROPOFOL
     Indication: ANAESTHESIA PROCEDURE
     Route: 040
  6. RANITIDINE [Suspect]
     Active Substance: RANITIDINE\RANITIDINE HYDROCHLORIDE
     Indication: ANAESTHESIA PROCEDURE
  7. FENTANYL. [Suspect]
     Active Substance: FENTANYL
     Indication: ANAESTHESIA PROCEDURE
  8. PROPOFOL. [Suspect]
     Active Substance: PROPOFOL
     Indication: ANAESTHESIA PROCEDURE
  9. MIDAZOLAM [Suspect]
     Active Substance: MIDAZOLAM\MIDAZOLAM HYDROCHLORIDE
     Indication: ANAESTHESIA PROCEDURE
     Route: 048
  10. GLYCOPYRROLATE                     /00196202/ [Suspect]
     Active Substance: GLYCOPYRROLATE
     Indication: ANAESTHESIA PROCEDURE

REACTIONS (2)
  - Drug interaction [Recovering/Resolving]
  - Atrioventricular dissociation [Recovering/Resolving]
